FAERS Safety Report 5880001-7 (Version None)
Quarter: 2008Q3

REPORT INFORMATION
  Report Type: 
  Country: None (occurrence: None)
  Receive Date: 20080910
  Receipt Date: 20080910
  Transmission Date: 20090109
  Serious: Yes (Life-Threatening, Hospitalization)
  Sender: FDA-Public Use
  Company Number: None

PATIENT
  Sex: Female
  Weight: 78.0187 kg

DRUGS (1)
  1. RECLAST [Suspect]
     Indication: OSTEOPOROSIS
     Dosage: 5 MG/100 ML 15+ MINUTES IV
     Route: 042
     Dates: start: 20080624, end: 20080624

REACTIONS (12)
  - AMNESIA [None]
  - ARTHRALGIA [None]
  - BEDRIDDEN [None]
  - BONE PAIN [None]
  - DISCOMFORT [None]
  - FALL [None]
  - HYPERHIDROSIS [None]
  - HYPOKINESIA [None]
  - INCOHERENT [None]
  - PYREXIA [None]
  - UNRESPONSIVE TO STIMULI [None]
  - WEIGHT DECREASED [None]
